FAERS Safety Report 10388339 (Version 1)
Quarter: 2014Q3

REPORT INFORMATION
  Report Type: Report from Study
  Country: GB (occurrence: GB)
  Receive Date: 20140815
  Receipt Date: 20140815
  Transmission Date: 20150326
  Serious: Yes (Hospitalization)
  Sender: FDA-Public Use
  Company Number: GB-009507513-1408GBR008095

PATIENT
  Sex: Male
  Weight: 109.8 kg

DRUGS (6)
  1. VORINOSTAT [Suspect]
     Active Substance: VORINOSTAT
     Indication: ACUTE MYELOID LEUKAEMIA
     Dosage: 300 MG, BID CYCLE 2
     Route: 048
     Dates: start: 20131218, end: 20140115
  2. DIGOXIN. [Concomitant]
     Active Substance: DIGOXIN
     Indication: ATRIAL FIBRILLATION
     Dosage: UNK
     Dates: end: 20140128
  3. ACYCLOVIR. [Concomitant]
     Active Substance: ACYCLOVIR
     Indication: PROPHYLAXIS
     Dosage: UNK
     Dates: end: 20140128
  4. AMOXICILLIN (+) CLAVULANATE POTASSIUM [Concomitant]
     Active Substance: AMOXICILLIN\CLAVULANATE POTASSIUM
     Indication: INFECTION
     Dosage: UNK
     Dates: start: 20140124, end: 20140128
  5. LANSOPRAZOLE. [Concomitant]
     Active Substance: LANSOPRAZOLE
     Dosage: UNK
     Dates: start: 20140128
  6. AZACITIDINE. [Suspect]
     Active Substance: AZACITIDINE
     Indication: ACUTE MYELOID LEUKAEMIA
     Dosage: 85 MG/M2, QD, CYCLE 2
     Route: 058
     Dates: start: 20131216, end: 20140121

REACTIONS (2)
  - Clostridium difficile infection [Recovered/Resolved]
  - Social stay hospitalisation [Recovered/Resolved]

NARRATIVE: CASE EVENT DATE: 20140129
